FAERS Safety Report 5823127-6 (Version None)
Quarter: 2008Q3

REPORT INFORMATION
  Report Type: 
  Country: None (occurrence: None)
  Receive Date: 20080725
  Receipt Date: 20080716
  Transmission Date: 20090109
  Serious: Yes (Death, Hospitalization)
  Sender: FDA-Public Use
  Company Number: US-MERCK-0807USA03436

PATIENT
  Age: 76 Year
  Sex: Male

DRUGS (1)
  1. STROMECTOL [Suspect]
     Indication: INFECTION
     Route: 065

REACTIONS (4)
  - ACUTE RESPIRATORY DISTRESS SYNDROME [None]
  - CARDIAC ARREST [None]
  - DRUG INEFFECTIVE [None]
  - STRONGYLOIDIASIS [None]
